FAERS Safety Report 5765841-7 (Version None)
Quarter: 2008Q2

REPORT INFORMATION
  Report Type: 
  Country: None (occurrence: None)
  Receive Date: 20080610
  Receipt Date: 20080610
  Transmission Date: 20081010
  Serious: Yes (Hospitalization)
  Sender: FDA-Public Use
  Company Number: None

PATIENT
  Sex: Female
  Weight: 80 kg

DRUGS (5)
  1. GLEEVEC [Suspect]
     Indication: ASTROCYTOMA
     Dosage: 600MG PO QD
     Route: 048
     Dates: start: 20071022, end: 20080607
  2. HYDROXYUREA [Suspect]
     Dosage: 500 MG PO BID
     Route: 048
     Dates: start: 20071022, end: 20080607
  3. KEPPRA [Concomitant]
  4. TRILEPTAL [Concomitant]
  5. DIAVOX [Concomitant]

REACTIONS (3)
  - NAUSEA [None]
  - VOMITING [None]
  - WEIGHT DECREASED [None]
